FAERS Safety Report 9311008 (Version 1)
Quarter: 2013Q2

REPORT INFORMATION
  Report Type: Spontaneous
  Country: US (occurrence: None)
  Receive Date: 20130523
  Receipt Date: 20130523
  Transmission Date: 20140414
  Serious: Yes (Disabling)
  Sender: FDA-Public Use
  Company Number: None

PATIENT
  Age: 68 Year
  Sex: Female
  Weight: 81.65 kg

DRUGS (1)
  1. LEVOFLOXACIN [Suspect]
     Indication: CELLULITIS
     Dosage: 500MG 1X PO
     Route: 048
     Dates: start: 20130226, end: 20130301

REACTIONS (10)
  - Feeling abnormal [None]
  - Tremor [None]
  - Presyncope [None]
  - Musculoskeletal pain [None]
  - Monoplegia [None]
  - Arthralgia [None]
  - Arthralgia [None]
  - Arthropathy [None]
  - Muscular weakness [None]
  - Local swelling [None]
